FAERS Safety Report 9529407 (Version 1)
Quarter: 2013Q1

REPORT INFORMATION
  Report Type: Spontaneous
  Country: US (occurrence: None)
  Receive Date: 20130329
  Receipt Date: 20130329
  Transmission Date: 20140127
  Serious: No
  Sender: FDA-Public Use
  Company Number: 1000042650

PATIENT
  Age: 71 Year
  Sex: Female

DRUGS (1)
  1. LINZESS (LINACLOTIDE) (145 MICROGRAM, CAPSULES) [Suspect]
     Dosage: 145 MCG, 1 IN 1 D
     Route: 048
     Dates: start: 20130208, end: 20130209

REACTIONS (1)
  - Rash pruritic [None]
